FAERS Safety Report 24356829 (Version 1)
Quarter: 2024Q3

REPORT INFORMATION
  Report Type: Spontaneous
  Country: MX (occurrence: MX)
  Receive Date: 20240924
  Receipt Date: 20240924
  Transmission Date: 20241016
  Serious: Yes (Hospitalization, Other)
  Sender: AMGEN
  Company Number: MX-AMGEN-MEXSP2024187346

PATIENT
  Sex: Female

DRUGS (1)
  1. PROLIA [Suspect]
     Active Substance: DENOSUMAB
     Indication: Product used for unknown indication
     Dosage: 60 MILLIGRAM PER MILLILITRE
     Route: 065

REACTIONS (7)
  - Dehydration [Unknown]
  - Gastroenteritis [Unknown]
  - Syncope [Unknown]
  - Dizziness [Unknown]
  - Hypertension [Unknown]
  - Hypotension [Unknown]
  - Counterfeit product administered [Unknown]

NARRATIVE: CASE EVENT DATE: 20240911
